FAERS Safety Report 5376849-8 (Version None)
Quarter: 2007Q3

REPORT INFORMATION
  Report Type: 
  Country: None (occurrence: None)
  Receive Date: 20070703
  Receipt Date: 20070626
  Transmission Date: 20080115
  Serious: Yes (Hospitalization)
  Sender: FDA-Public Use
  Company Number: FR-ABBOTT-07P-056-0371576-00

PATIENT
  Age: 46 Year
  Sex: Male

DRUGS (6)
  1. NORVIR [Suspect]
     Indication: ACQUIRED IMMUNODEFICIENCY SYNDROME
     Route: 048
     Dates: start: 20070426
  2. LAMIVUDINE [Suspect]
     Indication: ACQUIRED IMMUNODEFICIENCY SYNDROME
     Route: 048
     Dates: start: 20070426
  3. COTRIM [Suspect]
     Indication: ACQUIRED IMMUNODEFICIENCY SYNDROME
     Route: 048
  4. TENOFOVIR DISOPROXIL FUMARATE [Suspect]
     Indication: ACQUIRED IMMUNODEFICIENCY SYNDROME
     Route: 048
     Dates: start: 20070426
  5. ATAZANAVIR SULFATE [Suspect]
     Indication: ACQUIRED IMMUNODEFICIENCY SYNDROME
     Route: 048
     Dates: start: 20070426
  6. BUPRENORPHINE HCL [Suspect]
     Indication: CHEMICAL POISONING
     Route: 042
     Dates: end: 20070424

REACTIONS (4)
  - INJECTION SITE ULCER [None]
  - OEDEMA PERIPHERAL [None]
  - PURULENT DISCHARGE [None]
  - SKIN ULCER [None]
